FAERS Safety Report 15782344 (Version 1)
Quarter: 2019Q1

REPORT INFORMATION
  Report Type: Report from Study
  Country: ES (occurrence: ES)
  Receive Date: 20190102
  Receipt Date: 20190102
  Transmission Date: 20190417
  Serious: Yes (Hospitalization)
  Sender: FDA-Public Use
  Company Number: ES-MYLANLABS-2018M1019756

PATIENT
  Age: 81 Year
  Sex: Male

DRUGS (6)
  1. CLOPIDOGREL [Suspect]
     Active Substance: CLOPIDOGREL BISULFATE
     Indication: STENT PLACEMENT
     Dosage: 75 MG, QD
     Route: 048
     Dates: start: 20170511
  2. BISOPROLOL [Concomitant]
     Active Substance: BISOPROLOL
     Indication: PRODUCT USED FOR UNKNOWN INDICATION
     Dosage: UNK, QD (1-0-0)
     Route: 048
     Dates: start: 20170511
  3. PANTOPRAZOL                        /01263201/ [Concomitant]
     Active Substance: PANTOPRAZOLE
     Indication: PRODUCT USED FOR UNKNOWN INDICATION
     Dosage: UNK, QD
     Dates: start: 20160326
  4. ENALAPRIL [Concomitant]
     Active Substance: ENALAPRIL
     Indication: PRODUCT USED FOR UNKNOWN INDICATION
     Dosage: UNK, QD
     Route: 048
     Dates: start: 20170511
  5. ACETYLSALICYLIC ACID [Interacting]
     Active Substance: ASPIRIN
     Indication: STENT PLACEMENT
     Dosage: UNK
     Route: 048
  6. SINTROM [Interacting]
     Active Substance: ACENOCOUMAROL
     Indication: HYPERCOAGULATION
     Dosage: SP
     Route: 048
     Dates: start: 2007, end: 20170608

REACTIONS (2)
  - Haematuria [Recovered/Resolved]
  - Drug interaction [Unknown]

NARRATIVE: CASE EVENT DATE: 20170605
